FAERS Safety Report 17836319 (Version 1)
Quarter: 2020Q2

REPORT INFORMATION
  Report Type: Spontaneous
  Country: CN (occurrence: CN)
  Receive Date: 20200529
  Receipt Date: 20200529
  Transmission Date: 20200714
  Serious: Yes (Other)
  Sender: FDA-Public Use
  Company Number: CN-JNJFOC-20200527026

PATIENT
  Age: 1 Year
  Sex: Male
  Weight: 9.5 kg

DRUGS (3)
  1. VITAMIN C [Concomitant]
     Active Substance: ASCORBIC ACID
     Indication: PHARYNGITIS
     Route: 041
     Dates: start: 20200430, end: 20200501
  2. DEHYDROANDROGRAPHOLIDE SUCCINATE POTASSIUM SO [Suspect]
     Active Substance: POTASSIUM SODIUM DEHYDROANDROGRAPHOLIDE SUCCINATE
     Indication: PHARYNGITIS
     Route: 041
     Dates: start: 20200430, end: 20200503
  3. MOTRIN INFANTS [Suspect]
     Active Substance: IBUPROFEN
     Indication: PYREXIA
     Route: 048
     Dates: start: 20200430, end: 20200501

REACTIONS (1)
  - Neutropenia [Recovering/Resolving]

NARRATIVE: CASE EVENT DATE: 20200503
